FAERS Safety Report 4500154-2 (Version None)
Quarter: 2004Q4

REPORT INFORMATION
  Report Type: 
  Country: None (occurrence: None)
  Receive Date: 20041112
  Receipt Date: 20041109
  Transmission Date: 20050328
  Serious: Yes (Other)
  Sender: FDA-Public Use
  Company Number: US-JNJFOC-20040802826

PATIENT
  Sex: Male
  Weight: 84.37 kg

DRUGS (8)
  1. RISPERDAL [Suspect]
     Route: 049
  2. RISPERDAL [Suspect]
     Route: 049
  3. RISPERDAL [Suspect]
     Dosage: (TAKEN AT BEDTIME)
     Route: 049
  4. ULTRAM [Suspect]
     Indication: PAIN
     Route: 049
     Dates: start: 20031201, end: 20040701
  5. DILANTIN [Concomitant]
  6. IBUPROFEN [Concomitant]
  7. DAPSONE [Concomitant]
  8. TRAZODONE HCL [Concomitant]
     Dosage: 50-100 MG NIGHTLY

REACTIONS (3)
  - AGGRESSION [None]
  - HOMICIDAL IDEATION [None]
  - SUICIDAL IDEATION [None]
